FAERS Safety Report 19078367 (Version 1)
Quarter: 2021Q1

REPORT INFORMATION
  Report Type: Report from Study
  Country: CA (occurrence: CA)
  Receive Date: 20210331
  Receipt Date: 20210331
  Transmission Date: 20210420
  Serious: Yes (Other)
  Sender: FDA-Public Use
  Company Number: CA-PFIZER INC-2021324363

PATIENT
  Age: 55 Year
  Sex: Male

DRUGS (8)
  1. ROSUVASTATIN CALCIUM. [Suspect]
     Active Substance: ROSUVASTATIN CALCIUM
     Dosage: 20 MG, 2X/DAY
     Route: 048
  2. ARAVA [Concomitant]
     Active Substance: LEFLUNOMIDE
     Dosage: 10 MG, 1X/DAY
     Route: 048
  3. DILAUDID [Concomitant]
     Active Substance: HYDROMORPHONE HYDROCHLORIDE
     Dosage: 10 MG, 2X/DAY
     Route: 048
  4. FOLIC ACID. [Suspect]
     Active Substance: FOLIC ACID
     Dosage: 5 MG
     Route: 048
  5. DAPAGLIFLOZIN PROPANEDIOL MONOHYDRATE [Concomitant]
     Active Substance: DAPAGLIFLOZIN PROPANEDIOL
     Dosage: 10 MG, 1X/DAY
     Route: 048
  6. METHOTREXATE SODIUM. [Suspect]
     Active Substance: METHOTREXATE SODIUM
     Dosage: 25 MG, WEEKLY
     Route: 058
  7. METFORMIN HYDROCHLORIDE/SITAGLIPTIN PHOSPHATE MONOHYDRATE [Concomitant]
     Active Substance: METFORMIN HYDROCHLORIDE\SITAGLIPTIN PHOSPHATE
     Dosage: 100 MG, 1X/DAY
     Route: 048
  8. PLAQUENIL [Concomitant]
     Active Substance: HYDROXYCHLOROQUINE SULFATE
     Dosage: 400 MG, 1X/DAY
     Route: 048

REACTIONS (2)
  - Enthesopathy [Unknown]
  - Polyarthritis [Unknown]
